FAERS Safety Report 9638855 (Version 2)
Quarter: 2013Q4

REPORT INFORMATION
  Report Type: Spontaneous
  Country: US (occurrence: US)
  Receive Date: 20131022
  Receipt Date: 20131022
  Transmission Date: 20140711
  Serious: No
  Sender: FDA-Public Use
  Company Number: US-BRISTOL-MYERS SQUIBB COMPANY-19142330

PATIENT
  Age: 88 Year
  Sex: Male
  Weight: 76.19 kg

DRUGS (5)
  1. ELIQUIS [Suspect]
     Indication: HEART RATE IRREGULAR
     Dosage: ELIQUIS 5 MG TWICE DAILY 2 MONTHS AGO
     Route: 048
  2. SOTALOL [Concomitant]
  3. COZAAR [Concomitant]
  4. NORVASC [Concomitant]
  5. XANAX [Concomitant]

REACTIONS (6)
  - Skin disorder [Unknown]
  - Wound haemorrhage [Unknown]
  - Pigmentation disorder [Unknown]
  - Blood pressure abnormal [Unknown]
  - Heart rate abnormal [Unknown]
  - Dizziness [Unknown]
